FAERS Safety Report 6636722-1 (Version None)
Quarter: 2010Q1

REPORT INFORMATION
  Report Type: 
  Country: None (occurrence: None)
  Receive Date: 20100316
  Receipt Date: 20100308
  Transmission Date: 20100710
  Serious: Yes (Other)
  Sender: FDA-Public Use
  Company Number: B0638220A

PATIENT
  Sex: Female
  Weight: 47 kg

DRUGS (4)
  1. KIVEXA [Suspect]
     Indication: HIV INFECTION
     Dosage: 1TAB PER DAY
     Route: 048
     Dates: start: 20091007, end: 20091014
  2. VOGALENE [Suspect]
     Indication: NAUSEA
     Route: 048
     Dates: start: 20091013, end: 20091013
  3. REYATAZ [Suspect]
     Indication: HIV INFECTION
     Dosage: 300MG PER DAY
     Route: 048
     Dates: start: 20091007, end: 20091014
  4. NORVIR [Suspect]
     Indication: HIV INFECTION
     Dosage: 100MG PER DAY
     Route: 048
     Dates: start: 20091007, end: 20091014

REACTIONS (8)
  - ANGIOEDEMA [None]
  - BLOOD PRESSURE INCREASED [None]
  - FACE OEDEMA [None]
  - LIP SWELLING [None]
  - LIVEDO RETICULARIS [None]
  - NAUSEA [None]
  - PALMAR ERYTHEMA [None]
  - PRURITUS [None]
